FAERS Safety Report 6665161-2 (Version None)
Quarter: 2010Q2

REPORT INFORMATION
  Report Type: 
  Country: None (occurrence: None)
  Receive Date: 20100402
  Receipt Date: 20100329
  Transmission Date: 20101027
  Serious: Yes (Hospitalization)
  Sender: FDA-Public Use
  Company Number: US-BRISTOL-MYERS SQUIBB COMPANY-15022205

PATIENT
  Sex: Female

DRUGS (1)
  1. ABATACEPT [Suspect]
     Indication: VASCULITIS
     Dates: start: 20090410

REACTIONS (2)
  - EPIGLOTTITIS [None]
  - PHARYNGITIS [None]
